FAERS Safety Report 7529904-8 (Version None)
Quarter: 2011Q2

REPORT INFORMATION
  Report Type: 
  Country: None (occurrence: None)
  Receive Date: 20110607
  Receipt Date: 20110531
  Transmission Date: 20111010
  Serious: Yes (Other)
  Sender: FDA-Public Use
  Company Number: US-US-EMD SERONO, INC.-7008071

PATIENT
  Sex: Female
  Weight: 102 kg

DRUGS (3)
  1. GABAPENTIN [Concomitant]
     Indication: DYSPHAGIA
  2. TIZANIDINE HCL [Concomitant]
  3. REBIF [Suspect]
     Indication: MULTIPLE SCLEROSIS
     Route: 058
     Dates: start: 20100211

REACTIONS (4)
  - DIZZINESS [None]
  - MENORRHAGIA [None]
  - MULTIPLE SCLEROSIS RELAPSE [None]
  - INJECTION SITE PAIN [None]
